FAERS Safety Report 9951860 (Version 1)
Quarter: 2014Q1

REPORT INFORMATION
  Report Type: Report from Study
  Country: US (occurrence: US)
  Receive Date: 20140304
  Receipt Date: 20140304
  Transmission Date: 20141002
  Serious: No
  Sender: FDA-Public Use
  Company Number: US-ABBVIE-13P-163-1071623-00

PATIENT
  Age: 26 Year
  Sex: Female
  Weight: 56.75 kg

DRUGS (4)
  1. HUMIRA [Suspect]
     Indication: CROHN^S DISEASE
     Dates: start: 20130304, end: 20130304
  2. HUMIRA [Suspect]
  3. UNNAMED BIRTH CONTROL [Concomitant]
     Indication: CONTRACEPTION
  4. VITAMINS [Concomitant]
     Indication: VITAMIN SUPPLEMENTATION

REACTIONS (3)
  - Oropharyngeal pain [Recovered/Resolved]
  - Viral infection [Recovered/Resolved]
  - Sinusitis [Recovered/Resolved]
